FAERS Safety Report 4442151-1 (Version None)
Quarter: 2004Q3

REPORT INFORMATION
  Report Type: 
  Country: None (occurrence: None)
  Receive Date: 20040903
  Receipt Date: 20040722
  Transmission Date: 20050211
  Serious: Yes (Other)
  Sender: FDA-Public Use
  Company Number: 2004UW15458

PATIENT
  Age: 75 Year
  Sex: Male
  Weight: 115.6672 kg

DRUGS (18)
  1. CRESTOR [Suspect]
     Indication: HYPERCHOLESTEROLAEMIA
     Dosage: 10 MG PO
     Route: 048
     Dates: start: 20030101
  2. PREDNISOLONE [Concomitant]
  3. OMEPRAZOLE [Concomitant]
  4. OXYBUTYNIN CHLORIDE [Concomitant]
  5. DOCUSATE [Concomitant]
  6. CALCIUM [Concomitant]
  7. TOLTERODINE [Concomitant]
  8. CLOPIDOGREL [Concomitant]
  9. DOSTINEX [Concomitant]
  10. CARBIDOPA [Concomitant]
  11. ISOSORBIDE [Concomitant]
  12. METOPROLOL [Concomitant]
  13. LEVOTHYROXINE SODIUM [Concomitant]
  14. SUCRALFATE [Concomitant]
  15. POTASSIUM [Concomitant]
  16. FUROSEMIDE [Concomitant]
  17. LISINOPRIL [Concomitant]
  18. OLANZAPINE [Concomitant]

REACTIONS (2)
  - FATIGUE [None]
  - HYPERSOMNIA [None]
